FAERS Safety Report 19664100 (Version 7)
Quarter: 2022Q2

REPORT INFORMATION
  Report Type: Report from Study
  Country: US (occurrence: US)
  Receive Date: 20210805
  Receipt Date: 20220428
  Transmission Date: 20220721
  Serious: No
  Sender: FDA-Public Use
  Company Number: NVSC2021US169962

PATIENT
  Sex: Female

DRUGS (1)
  1. COSENTYX [Suspect]
     Active Substance: SECUKINUMAB
     Indication: Product used for unknown indication
     Dosage: 300 MG, QMO
     Route: 058

REACTIONS (6)
  - Hypersensitivity [Unknown]
  - Skin plaque [Unknown]
  - Psoriasis [Unknown]
  - Arthritis [Unknown]
  - COVID-19 [Unknown]
  - Malaise [Unknown]
